FAERS Safety Report 7700430-6 (Version None)
Quarter: 2011Q3

REPORT INFORMATION
  Report Type: 
  Country: None (occurrence: None)
  Receive Date: 20110816
  Receipt Date: 20110808
  Transmission Date: 20111222
  Serious: Yes (Hospitalization)
  Sender: FDA-Public Use
  Company Number: DSA_47365_2011

PATIENT
  Sex: Female

DRUGS (7)
  1. RISPERIDONE [Concomitant]
  2. LORAZEPAM [Concomitant]
  3. CITALOPRAM HYDROBROMIDE [Concomitant]
  4. XENAZINE [Suspect]
     Indication: HUNTINGTON'S DISEASE
     Dosage: (12.5 MG BID ORAL)
     Route: 048
     Dates: start: 20110726, end: 20110729
  5. DIVALPROEX SODIUM [Concomitant]
  6. HALDOL [Concomitant]
  7. AMANTADINE HCL [Concomitant]

REACTIONS (5)
  - PYREXIA [None]
  - URINARY TRACT INFECTION [None]
  - FLUID INTAKE REDUCED [None]
  - APHASIA [None]
  - LETHARGY [None]
